FAERS Safety Report 5933744-0 (Version None)
Quarter: 2008Q4

REPORT INFORMATION
  Report Type: 
  Country: None (occurrence: None)
  Receive Date: 20081029
  Receipt Date: 20081018
  Transmission Date: 20090506
  Serious: Yes (Hospitalization)
  Sender: FDA-Public Use
  Company Number: US-ROCHE-592337

PATIENT
  Sex: Female
  Weight: 84.8 kg

DRUGS (1)
  1. CAPECITABINE [Suspect]
     Indication: COLORECTAL CANCER
     Dosage: DOSE REPORTED AS: 1500 MG AM, 1000 MG PM
     Route: 065

REACTIONS (2)
  - CYANOSIS [None]
  - ILL-DEFINED DISORDER [None]
